FAERS Safety Report 9385488 (Version 3)
Quarter: 2014Q3

REPORT INFORMATION
  Report Type: Spontaneous
  Country: US (occurrence: US)
  Receive Date: 20130705
  Receipt Date: 20140701
  Transmission Date: 20150326
  Serious: Yes (Death, Hospitalization)
  Sender: FDA-Public Use
  Company Number: US-GLAXOSMITHKLINE-A1030307A

PATIENT
  Sex: Female

DRUGS (1)
  1. AVANDIA [Suspect]
     Active Substance: ROSIGLITAZONE MALEATE
     Indication: DIABETES MELLITUS
     Dosage: 8MG TWICE PER DAY
     Route: 048
     Dates: start: 1999, end: 2009

REACTIONS (5)
  - Cardiac failure congestive [Unknown]
  - Bacteraemia [Fatal]
  - Septic shock [Fatal]
  - Myocardial infarction [Unknown]
  - Renal failure chronic [Fatal]
